FAERS Safety Report 9153440 (Version 1)
Quarter: 2013Q1

REPORT INFORMATION
  Report Type: Spontaneous
  Country: US (occurrence: None)
  Receive Date: 20130131
  Receipt Date: 20130131
  Transmission Date: 20140127
  Serious: Yes (Hospitalization, Other)
  Sender: FDA-Public Use
  Company Number: 2013SUN00041

PATIENT
  Age: 57 Year
  Sex: Female

DRUGS (1)
  1. GEMCITABINE [Suspect]
     Indication: BREAST CANCER
     Dosage: 1250 MG/M2, ON DAYS 1 AND 8 OF A 21-DAY CYCLES
     Dates: start: 201009

REACTIONS (5)
  - Posterior reversible encephalopathy syndrome [None]
  - Peripheral artery thrombosis [None]
  - Thrombocytopenia [None]
  - Renal vein thrombosis [None]
  - Splenic vein thrombosis [None]
